FAERS Safety Report 8941842 (Version 1)
Quarter: 2012Q4

REPORT INFORMATION
  Report Type: 
  Country: GB (occurrence: GB)
  Receive Date: 20121203
  Receipt Date: 20121203
  Transmission Date: 20130627
  Serious: Yes (Hospitalization)
  Sender: FDA-Public Use
  Company Number: GB-PFIZER INC-2010157700

PATIENT
  Age: 71 Year
  Sex: Male

DRUGS (5)
  1. SUNITINIB MALATE [Suspect]
     Indication: TRANSITIONAL CELL CARCINOMA
     Dosage: 25 mg, UNK
     Dates: start: 20100929
  2. CISPLATIN [Suspect]
     Indication: TRANSITIONAL CELL CARCINOMA
     Dosage: 70 mg/m2, UNK
     Route: 042
  3. GEMCITABINE [Suspect]
     Indication: TRANSITIONAL CELL CARCINOMA
     Dosage: 1000 mg/m2, UNK
     Route: 042
  4. OMEPRAZOLE [Concomitant]
     Dosage: 10 mg, UNK
     Route: 048
  5. TAMSULOSIN [Concomitant]
     Dosage: 400 mcg (unit dose)
     Route: 048

REACTIONS (1)
  - Rectal haemorrhage [Recovered/Resolved with Sequelae]
